FAERS Safety Report 12386130 (Version 4)
Quarter: 2016Q3

REPORT INFORMATION
  Report Type: Report from Study
  Country: JP (occurrence: JP)
  Receive Date: 20160519
  Receipt Date: 20160813
  Transmission Date: 20161109
  Serious: Yes (Other)
  Sender: FDA-Public Use
  Company Number: JP-AMGEN-JPNCT2015141456

PATIENT
  Sex: Male
  Weight: 80.1 kg

DRUGS (20)
  1. PANITUMUMAB [Suspect]
     Active Substance: PANITUMUMAB
     Dosage: 4.8 MG/KG, Q2WK
     Route: 041
     Dates: start: 20160304
  2. OXALIPLATIN. [Concomitant]
     Active Substance: OXALIPLATIN
     Indication: COLON CANCER
     Dosage: 160 MG, Q2WEEKS
     Route: 041
     Dates: start: 20151203, end: 20160104
  3. 5-FU [Concomitant]
     Active Substance: FLUOROURACIL
     Dosage: 4600 MG, Q2WEEKS
     Route: 041
     Dates: start: 20160127, end: 20160127
  4. 5-FU [Concomitant]
     Active Substance: FLUOROURACIL
     Dosage: 200 MG/M2, Q2WK
     Route: 040
     Dates: start: 20160219
  5. 5-FU [Concomitant]
     Active Substance: FLUOROURACIL
     Dosage: 2000 MG/M2, Q2WEEKS
     Route: 041
     Dates: start: 20160219
  6. 5-FU                               /00098801/ [Concomitant]
     Active Substance: FLUOROURACIL
     Dosage: 4600 MG, Q2WEEKS
     Route: 041
     Dates: start: 20160127, end: 20160127
  7. PANITUMUMAB [Suspect]
     Active Substance: PANITUMUMAB
     Indication: COLON CANCER
     Dosage: 480 MG, Q2WK
     Route: 041
     Dates: start: 20151203, end: 20160104
  8. CALCIUM LEVOFOLINATE [Concomitant]
     Active Substance: LEVOLEUCOVORIN CALCIUM
     Indication: COLON CANCER
     Dosage: 375 MG, Q2WEEKS
     Route: 041
     Dates: start: 20160127, end: 20160127
  9. OXALIPLATIN. [Concomitant]
     Active Substance: OXALIPLATIN
     Indication: COLON CANCER
     Dosage: 160 MG, Q2WEEKS
     Route: 041
     Dates: start: 20160127, end: 20160127
  10. PANITUMUMAB [Suspect]
     Active Substance: PANITUMUMAB
     Dosage: 480 MG, Q2WK
     Route: 041
     Dates: start: 20160219, end: 20160219
  11. 5-FU [Concomitant]
     Active Substance: FLUOROURACIL
     Indication: COLON CANCER
     Dosage: 750 MG, Q2WEEKS
     Route: 040
     Dates: start: 20151203, end: 20160104
  12. 5-FU [Concomitant]
     Active Substance: FLUOROURACIL
     Dosage: 4600 MG, Q2WEEKS
     Route: 041
     Dates: start: 20151203, end: 20160104
  13. OXALIPLATIN. [Concomitant]
     Active Substance: OXALIPLATIN
     Dosage: 50 MG/M2, Q2WEEKS
     Route: 041
     Dates: start: 20160506
  14. 5-FU                               /00098801/ [Concomitant]
     Active Substance: FLUOROURACIL
     Dosage: 2000 MG/M2, Q2WEEKS
     Route: 041
     Dates: start: 20160219
  15. PANITUMUMAB [Suspect]
     Active Substance: PANITUMUMAB
     Dosage: 480 MG, Q2WK
     Route: 041
     Dates: start: 20160127, end: 20160127
  16. 5-FU [Concomitant]
     Active Substance: FLUOROURACIL
     Dosage: 750 MG, Q2WEEKS
     Route: 040
     Dates: start: 20160127, end: 20160127
  17. OXALIPLATIN. [Concomitant]
     Active Substance: OXALIPLATIN
     Dosage: 65 MG/M2, Q2WEEKS
     Route: 041
     Dates: start: 20160219, end: 20160415
  18. CALCIUM LEVOFOLINATE [Concomitant]
     Active Substance: LEVOLEUCOVORIN CALCIUM
     Dosage: UNK, Q2WEEKS
     Route: 041
     Dates: start: 20160219
  19. 5-FU                               /00098801/ [Concomitant]
     Active Substance: FLUOROURACIL
     Indication: COLON CANCER
     Dosage: 4600 MG, Q2WEEKS
     Route: 041
     Dates: start: 20151203, end: 20160104
  20. CALCIUM LEVOFOLINATE [Concomitant]
     Active Substance: LEVOLEUCOVORIN CALCIUM
     Indication: COLON CANCER
     Dosage: 375 MG, Q2WEEKS
     Route: 041
     Dates: start: 20151203, end: 20160104

REACTIONS (17)
  - Constipation [Unknown]
  - Paronychia [Recovered/Resolved]
  - Decreased appetite [Recovered/Resolved]
  - Stomatitis [Unknown]
  - Constipation [Recovered/Resolved]
  - Dry skin [Unknown]
  - Nausea [Recovered/Resolved]
  - Peripheral sensory neuropathy [Unknown]
  - Neutrophil count decreased [Unknown]
  - Diarrhoea [Recovered/Resolved]
  - Fatigue [Recovered/Resolved]
  - Dysgeusia [Unknown]
  - Arthralgia [Recovered/Resolved]
  - Dermatitis acneiform [Unknown]
  - Myalgia [Recovered/Resolved]
  - Fatigue [Unknown]
  - Alopecia [Recovered/Resolved]
